FAERS Safety Report 23809265 (Version 7)
Quarter: 2025Q1

REPORT INFORMATION
  Report Type: Report from Study
  Country: GB (occurrence: GB)
  Receive Date: 20240502
  Receipt Date: 20250113
  Transmission Date: 20250409
  Serious: Yes (Hospitalization, Other)
  Sender: MYLAN
  Company Number: GB-MYLANLABS-2024M1039036

PATIENT
  Age: 33 Year
  Sex: Female

DRUGS (4)
  1. EMTRICITABINE\TENOFOVIR DISOPROXIL [Suspect]
     Active Substance: EMTRICITABINE\TENOFOVIR DISOPROXIL
     Indication: HIV infection
     Route: 048
     Dates: start: 20230919
  2. RITONAVIR [Suspect]
     Active Substance: RITONAVIR
     Indication: HIV infection
     Dosage: 100 MILLIGRAM, QD
     Route: 048
     Dates: start: 20230919
  3. DARUNAVIR [Suspect]
     Active Substance: DARUNAVIR
     Indication: HIV infection
     Dosage: 800 MILLIGRAM, QD (800 MG/DAY)
     Route: 048
     Dates: start: 20230919
  4. NORVIR [Suspect]
     Active Substance: RITONAVIR
     Indication: HIV infection
     Dosage: 100 MILLIGRAM, QD
     Route: 065

REACTIONS (3)
  - Abortion of ectopic pregnancy [Recovered/Resolved]
  - Ectopic pregnancy [Unknown]
  - Maternal exposure during pregnancy [Recovered/Resolved]

NARRATIVE: CASE EVENT DATE: 20240401
